FAERS Safety Report 8556415-3 (Version None)
Quarter: 2012Q3

REPORT INFORMATION
  Report Type: 
  Country: None (occurrence: None)
  Receive Date: 20120801
  Receipt Date: 20120728
  Transmission Date: 20120928
  Serious: Yes (Hospitalization)
  Sender: FDA-Public Use
  Company Number: PHEH2012US012250

PATIENT
  Sex: Female

DRUGS (4)
  1. CELEXA [Interacting]
  2. TASIGNA [Suspect]
     Indication: CHRONIC MYELOID LEUKAEMIA
     Dosage: 300 MG, BID
     Route: 048
     Dates: start: 20120502
  3. TYLENOL ES [Concomitant]
  4. ZOLOFT [Concomitant]

REACTIONS (4)
  - CHRONIC MYELOID LEUKAEMIA [None]
  - PAIN [None]
  - DISEASE COMPLICATION [None]
  - DRUG INTERACTION [None]
